FAERS Safety Report 19397694 (Version 5)
Quarter: 2024Q2

REPORT INFORMATION
  Report Type: Spontaneous
  Country: JP (occurrence: JP)
  Receive Date: 20210609
  Receipt Date: 20240508
  Transmission Date: 20240716
  Serious: Yes (Hospitalization, Other)
  Sender: FDA-Public Use
  Company Number: JP-SAKK-2021SA188788AA

PATIENT
  Age: 69 Year
  Sex: Female
  Weight: 47.5 kg

DRUGS (2)
  1. DOCETAXEL [Suspect]
     Active Substance: DOCETAXEL\DOCETAXEL ANHYDROUS
     Indication: Oesophageal carcinoma
     Dosage: 60 MG/M2
  2. DOCETAXEL [Suspect]
     Active Substance: DOCETAXEL\DOCETAXEL ANHYDROUS
     Indication: Oesophageal squamous cell carcinoma recurrent

REACTIONS (7)
  - Malnutrition [Recovering/Resolving]
  - Oedema peripheral [Recovering/Resolving]
  - Generalised oedema [Recovering/Resolving]
  - Pleural effusion [Recovering/Resolving]
  - Ascites [Recovering/Resolving]
  - Febrile neutropenia [Recovering/Resolving]
  - Toxicity to various agents [Recovering/Resolving]

NARRATIVE: CASE EVENT DATE: 20150101
